FAERS Safety Report 5152914-5 (Version None)
Quarter: 2006Q4

REPORT INFORMATION
  Report Type: 
  Country: None (occurrence: None)
  Receive Date: 20061114
  Receipt Date: 20061114
  Transmission Date: 20070319
  Serious: No
  Sender: FDA-Public Use
  Company Number: None

PATIENT
  Age: 40 Year
  Sex: Female

DRUGS (1)
  1. HUMALOG [Suspect]
     Dosage: INJECTION  10ML VIAL

REACTIONS (1)
  - MEDICATION ERROR [None]
